FAERS Safety Report 10196995 (Version 2)
Quarter: 2014Q2

REPORT INFORMATION
  Report Type: Report from Study
  Country: IN (occurrence: IN)
  Receive Date: 20140527
  Receipt Date: 20140530
  Transmission Date: 20141212
  Serious: Yes (Death)
  Sender: FDA-Public Use
  Company Number: IN-B.I. PHARMACEUTICALS,INC./RIDGEFIELD-2014-BI-22717IG

PATIENT
  Sex: Female
  Weight: 87 kg

DRUGS (3)
  1. AFATINIB [Suspect]
     Indication: LUNG ADENOCARCINOMA METASTATIC
     Dosage: 50 MG
     Route: 048
     Dates: start: 20140315, end: 20140502
  2. LEVETIRACETAM [Concomitant]
     Indication: METASTASES TO CENTRAL NERVOUS SYSTEM
     Dosage: 1000 MG
     Route: 048
     Dates: start: 20120831, end: 20140514
  3. GLIMEPRIDE [Concomitant]
     Indication: DIABETES MELLITUS
     Dosage: 5 MG
     Route: 048
     Dates: start: 20120831, end: 20140514

REACTIONS (1)
  - Cardio-respiratory arrest [Fatal]
